FAERS Safety Report 24857126 (Version 6)
Quarter: 2025Q1

REPORT INFORMATION
  Report Type: Report from Study
  Country: CN (occurrence: CN)
  Receive Date: 20250117
  Receipt Date: 20250310
  Transmission Date: 20250408
  Serious: Yes (Hospitalization)
  Sender: PAREXEL
  Company Number: CN-STEMLINE THERAPEUTICS, INC-2025-STML-CN000111

PATIENT

DRUGS (33)
  1. ELACESTRANT [Suspect]
     Active Substance: ELACESTRANT
     Indication: Breast cancer metastatic
     Dosage: 345 MG, DAILY
     Route: 048
     Dates: start: 20240827, end: 20241216
  2. ELACESTRANT [Suspect]
     Active Substance: ELACESTRANT
     Dosage: 345 MG, DAILY
     Route: 048
     Dates: start: 20241217
  3. ELACESTRANT [Suspect]
     Active Substance: ELACESTRANT
     Route: 065
     Dates: start: 20240827, end: 20240901
  4. ELACESTRANT [Suspect]
     Active Substance: ELACESTRANT
     Route: 065
     Dates: start: 20240903, end: 20240904
  5. ELACESTRANT [Suspect]
     Active Substance: ELACESTRANT
     Route: 065
     Dates: start: 20240908, end: 20240911
  6. ELACESTRANT [Suspect]
     Active Substance: ELACESTRANT
     Route: 065
     Dates: start: 20240913, end: 20240913
  7. ELACESTRANT [Suspect]
     Active Substance: ELACESTRANT
     Route: 065
     Dates: start: 20240916, end: 20240916
  8. ELACESTRANT [Suspect]
     Active Substance: ELACESTRANT
     Route: 065
     Dates: start: 20240918, end: 20240920
  9. ELACESTRANT [Suspect]
     Active Substance: ELACESTRANT
     Route: 065
     Dates: start: 20240923, end: 20240924
  10. ELACESTRANT [Suspect]
     Active Substance: ELACESTRANT
     Route: 065
     Dates: start: 20240926, end: 20240928
  11. ELACESTRANT [Suspect]
     Active Substance: ELACESTRANT
     Route: 065
     Dates: start: 20240930, end: 20241003
  12. ELACESTRANT [Suspect]
     Active Substance: ELACESTRANT
     Route: 065
     Dates: start: 20241005, end: 20241012
  13. ELACESTRANT [Suspect]
     Active Substance: ELACESTRANT
     Route: 065
     Dates: start: 20241014, end: 20241015
  14. ELACESTRANT [Suspect]
     Active Substance: ELACESTRANT
     Route: 065
     Dates: start: 20241017, end: 20241112
  15. ELACESTRANT [Suspect]
     Active Substance: ELACESTRANT
     Route: 065
     Dates: start: 20241113, end: 20241119
  16. ELACESTRANT [Suspect]
     Active Substance: ELACESTRANT
     Route: 065
     Dates: start: 20241121, end: 20241122
  17. ELACESTRANT [Suspect]
     Active Substance: ELACESTRANT
     Route: 065
     Dates: start: 20241125, end: 20241205
  18. ELACESTRANT [Suspect]
     Active Substance: ELACESTRANT
     Route: 065
     Dates: start: 20241207, end: 20241208
  19. ELACESTRANT [Suspect]
     Active Substance: ELACESTRANT
     Route: 065
     Dates: start: 20241217, end: 20250102
  20. ELACESTRANT [Suspect]
     Active Substance: ELACESTRANT
     Route: 065
     Dates: start: 20250104, end: 20250114
  21. ELACESTRANT [Suspect]
     Active Substance: ELACESTRANT
     Route: 065
     Dates: start: 20250116, end: 20250119
  22. ELACESTRANT [Suspect]
     Active Substance: ELACESTRANT
     Route: 065
     Dates: start: 20250120
  23. METHYLCOBALAMIN [Concomitant]
     Active Substance: METHYLCOBALAMIN
     Indication: Hypoaesthesia
     Dosage: 0.5 MG, TID
     Route: 048
     Dates: start: 202402
  24. TRIMETAZIDINE DIHYDROCHLORIDE [Concomitant]
     Active Substance: TRIMETAZIDINE DIHYDROCHLORIDE
     Indication: Renal failure
     Dosage: 20 MG, TID
     Route: 048
     Dates: start: 202402
  25. TRIMETAZIDINE DIHYDROCHLORIDE [Concomitant]
     Active Substance: TRIMETAZIDINE DIHYDROCHLORIDE
     Indication: Blood creatinine decreased
  26. RIVAROXABAN [Concomitant]
     Active Substance: RIVAROXABAN
     Indication: Pulmonary embolism
     Dosage: 10 MG, DAILY
     Route: 048
     Dates: start: 202208
  27. PHOSPHOLIPID [Concomitant]
     Active Substance: PHOSPHOLIPID
     Indication: Liver disorder
     Dosage: 456 MG, TID
     Route: 048
     Dates: start: 202404
  28. PHOSPHOLIPID [Concomitant]
     Active Substance: PHOSPHOLIPID
     Indication: Hepatic failure
  29. COENZYME Q10 [Concomitant]
     Active Substance: DIETARY SUPPLEMENT\UBIDECARENONE
     Indication: Functional gastrointestinal disorder
     Dosage: 100 MG, DAILY
     Route: 048
     Dates: start: 202302
  30. VITAMIN C [Concomitant]
     Active Substance: ASCORBIC ACID
     Indication: Functional gastrointestinal disorder
     Dosage: 1 G, DAILY
     Route: 048
     Dates: start: 202302
  31. VITAMIN E [Concomitant]
     Active Substance: .ALPHA.-TOCOPHEROL
     Indication: Functional gastrointestinal disorder
     Dosage: 1 G, DAILY
     Route: 048
     Dates: start: 202302
  32. DENOSUMAB [Concomitant]
     Active Substance: DENOSUMAB
     Indication: Metastases to bone
     Dosage: 120 MG, Q4WEEKS
     Route: 058
     Dates: start: 2024
  33. AMINOPHYLLINE\CHLORPHENIRAMINE MALEATE\METHOXYPHENAMINE HYDROCHLORIDE\ [Concomitant]
     Active Substance: AMINOPHYLLINE\CHLORPHENIRAMINE MALEATE\METHOXYPHENAMINE HYDROCHLORIDE\NOSCAPINE
     Indication: Pulmonary embolism
     Dates: start: 20240827, end: 20240902

REACTIONS (2)
  - Pyrexia [Recovered/Resolved]
  - Osteomyelitis [Recovered/Resolved with Sequelae]

NARRATIVE: CASE EVENT DATE: 20241208
